FAERS Safety Report 13898067 (Version 1)
Quarter: 2017Q3

REPORT INFORMATION
  Report Type: Spontaneous
  Country: AT (occurrence: AT)
  Receive Date: 20170823
  Receipt Date: 20170823
  Transmission Date: 20171127
  Serious: Yes (Hospitalization)
  Sender: FDA-Public Use
  Company Number: AT-B.I. PHARMACEUTICALS,INC./RIDGEFIELD-2017-BI-045676

PATIENT
  Sex: Male

DRUGS (1)
  1. PRADAXA [Suspect]
     Active Substance: DABIGATRAN ETEXILATE MESYLATE
     Indication: ANTICOAGULANT THERAPY
     Route: 065

REACTIONS (5)
  - Cardiac failure [Recovered/Resolved]
  - Blood test abnormal [Recovered/Resolved]
  - Haematocrit abnormal [Recovered/Resolved]
  - Red blood cell count increased [Recovered/Resolved]
  - Thrombin time prolonged [Recovered/Resolved]
